FAERS Safety Report 9772002 (Version 1)
Quarter: 2013Q4

REPORT INFORMATION
  Report Type: Report from Study
  Country: DE (occurrence: DE)
  Receive Date: 20131219
  Receipt Date: 20131219
  Transmission Date: 20140711
  Serious: Yes (Other)
  Sender: FDA-Public Use
  Company Number: DE-ROCHE-1320845

PATIENT
  Age: 65 Year
  Sex: Male

DRUGS (1)
  1. VEMURAFENIB [Suspect]
     Indication: METASTATIC MALIGNANT MELANOMA
     Route: 065
     Dates: start: 20130508, end: 20130717

REACTIONS (8)
  - Radiation skin injury [Unknown]
  - Nausea [Unknown]
  - Weight decreased [Unknown]
  - Acanthoma [Unknown]
  - Skin papilloma [Unknown]
  - Rash [Unknown]
  - Photosensitivity reaction [Unknown]
  - Malignant neoplasm progression [Unknown]
